FAERS Safety Report 9211083 (Version 1)
Quarter: 2013Q2

REPORT INFORMATION
  Report Type: Report from Study
  Country: US (occurrence: US)
  Receive Date: 20130404
  Receipt Date: 20130404
  Transmission Date: 20140414
  Serious: Yes (Other)
  Sender: FDA-Public Use
  Company Number: US-AMGEN-US336932

PATIENT
  Age: 85 Year
  Sex: Male

DRUGS (10)
  1. DENOSUMAB [Suspect]
     Indication: PROSTATE CANCER
     Dosage: UNK BLINDED, QMO
     Route: 058
     Dates: start: 20061013, end: 20090226
  2. CORTISONE [Suspect]
     Dosage: UNK UNK, UNK
     Route: 030
     Dates: start: 20080908, end: 20080908
  3. BETAMETHASONE [Suspect]
     Dosage: UNK UNK, UNK
     Route: 008
     Dates: start: 20080611, end: 20080625
  4. LEUPRORELIN ACETATE [Concomitant]
     Dosage: 30 MG, UNK
     Dates: start: 200304
  5. CALCIUM [Concomitant]
     Dosage: 500 MG, BID
     Dates: start: 20061116
  6. ERGOCALCIFEROL [Concomitant]
     Dosage: 200 IU, BID
     Dates: start: 20061116
  7. ACETAMINOPHEN [Concomitant]
     Dosage: 1000 MG, QD
     Dates: start: 20071004
  8. HYDROCODONE BITARTRATE + ACETAMINOPHEN [Concomitant]
     Dosage: UNK UNK, PRN
     Dates: start: 20080618
  9. GABAPENTIN [Concomitant]
     Dosage: 300 MG, QD
     Dates: start: 20080812
  10. CHLORHEXIDINE GLUCONATE [Concomitant]
     Dosage: 15 ML, BID
     Route: 048
     Dates: start: 20090120

REACTIONS (1)
  - Osteonecrosis of jaw [Recovered/Resolved with Sequelae]
